FAERS Safety Report 6017684-7 (Version None)
Quarter: 2008Q4

REPORT INFORMATION
  Report Type: 
  Country: None (occurrence: None)
  Receive Date: 20081223
  Receipt Date: 20081211
  Transmission Date: 20090506
  Serious: Yes (Death, Other)
  Sender: FDA-Public Use
  Company Number: JP-ROCHE-437877

PATIENT
  Sex: Male
  Weight: 72 kg

DRUGS (7)
  1. TAMIFLU [Suspect]
     Indication: INFLUENZA
     Route: 048
     Dates: start: 20060218, end: 20060218
  2. TAMIFLU [Suspect]
     Dosage: DOSE INCREASED.
     Route: 048
     Dates: start: 20060219, end: 20060219
  3. PL [Suspect]
     Indication: DRUG USE FOR UNKNOWN INDICATION
     Route: 048
     Dates: start: 20060218, end: 20060219
  4. BRUFEN [Suspect]
     Indication: DRUG USE FOR UNKNOWN INDICATION
     Route: 048
     Dates: start: 20060218, end: 20060219
  5. MUCOSTA [Suspect]
     Indication: DRUG USE FOR UNKNOWN INDICATION
     Route: 048
     Dates: start: 20060218, end: 20060219
  6. LACTEC D [Concomitant]
     Dosage: DRUG NAME LACTEC-D (LACTATED RINGER'S SOLUTION:GLUC).
     Route: 041
     Dates: start: 20060218, end: 20060218
  7. SOLDEM [Concomitant]
     Dosage: DRUG NAME SOLDEM 3A().
     Route: 041
     Dates: start: 20060218, end: 20060218

REACTIONS (3)
  - MULTI-ORGAN FAILURE [None]
  - RASH [None]
  - RENAL FAILURE ACUTE [None]
